FAERS Safety Report 12327147 (Version 1)
Quarter: 2016Q2

REPORT INFORMATION
  Report Type: Report from Study
  Country: CA (occurrence: CA)
  Receive Date: 20160503
  Receipt Date: 20160503
  Transmission Date: 20160815
  Serious: Yes (Death, Hospitalization, Disabling)
  Sender: FDA-Public Use
  Company Number: CA-TOLMAR, INC.-2016CA000165

PATIENT

DRUGS (14)
  1. PREGABALIN. [Concomitant]
     Active Substance: PREGABALIN
     Dosage: 50 MG, 1 CAPSULE TWICE DAILY MORNING AND NIGHT IF PAIN
     Route: 065
  2. RAMIPRIL. [Concomitant]
     Active Substance: RAMIPRIL
     Dosage: 5 MG, 1 CAPSULE ONCE DAILY AT BREAKFAST
     Route: 065
  3. SOLIFENACINE [Concomitant]
     Dosage: 1 DF, DAILY
     Route: 065
  4. DALTEPARINE SODIQUE [Concomitant]
     Dosage: 12500 U/0.5 ML, 1 INJECTION SC ONCE DAILY
     Route: 058
  5. MOXIFLOXACINE [Concomitant]
     Dosage: 400 MG, 1 TABLET ONCE DAILY EVERY 24 HOURS FOR 10 DAYS
  6. VITAMIN D3 [Concomitant]
     Active Substance: CHOLECALCIFEROL
     Dosage: 400 UNK, 1 CAPSULE TWICE DAILY LUNCH AND SUPPER
     Route: 065
  7. NAPROXEN. [Concomitant]
     Active Substance: NAPROXEN
     Dosage: 500 MG, 1 TABLET TWICE DAILY AT BREAKFAST AND AT SUPPER FOR 7 DAYS
     Route: 065
  8. MORPHINE [Concomitant]
     Active Substance: MORPHINE
     Dosage: 5 MG, 1 TABLET EVERY HOUR IF PAIN
     Route: 065
  9. LEUPROLIDE                         /00726901/ [Concomitant]
     Dosage: 30 MG, EVERY 4 MONTHS
     Route: 058
  10. OXAZEPAM. [Concomitant]
     Active Substance: OXAZEPAM
     Dosage: 15 MG, 1 TABLET AT BEDTIME IF NEEDED
     Route: 065
  11. VENLAFAXINE [Concomitant]
     Active Substance: VENLAFAXINE HYDROCHLORIDE
     Dosage: 37.5 MG, 1 CAPSULE ONCE DAILY AT BREAKFAST
     Route: 065
  12. CALCIUM CARBONATE. [Concomitant]
     Active Substance: CALCIUM CARBONATE
     Dosage: 500 MG, 1 TABLET TWICE DAILY LUNCH AND SUPPER
     Route: 065
  13. ZOPICLONE [Concomitant]
     Active Substance: ZOPICLONE
     Dosage: 5 MG, 1 TO 1 ? AT BEDTIM
     Route: 065
  14. ELIGARD [Suspect]
     Active Substance: LEUPROLIDE ACETATE
     Indication: PROSTATE CANCER
     Dosage: 30 MG, EVERY FOUR MONTHS
     Route: 058
     Dates: start: 2011

REACTIONS (4)
  - Spinal deformity [Recovering/Resolving]
  - Spinal cord compression [Recovering/Resolving]
  - Prostate cancer metastatic [Fatal]
  - Paralysis [Recovering/Resolving]

NARRATIVE: CASE EVENT DATE: 201512
